FAERS Safety Report 8821619 (Version 2)
Quarter: 2012Q4

REPORT INFORMATION
  Report Type: Report from Study
  Country: CA (occurrence: CA)
  Receive Date: 20121002
  Receipt Date: 20121011
  Transmission Date: 20130627
  Serious: Yes (Hospitalization)
  Sender: FDA-Public Use
  Company Number: CA-ABBOTT-12P-028-0989032-00

PATIENT
  Sex: Female

DRUGS (2)
  1. HUMIRA [Suspect]
     Indication: CROHN^S DISEASE
     Route: 058
     Dates: start: 20120629
  2. HUMIRA [Suspect]
     Dosage: Weekly
     Route: 058

REACTIONS (3)
  - Unevaluable event [Unknown]
  - Subileus [Recovered/Resolved]
  - Crohn^s disease [Recovered/Resolved]
